FAERS Safety Report 8272587 (Version 2)
Quarter: 2017Q3

REPORT INFORMATION
  Report Type: Spontaneous
  Country: US (occurrence: US)
  Receive Date: 20111202
  Receipt Date: 20170721
  Transmission Date: 20171128
  Serious: Yes (Other)
  Sender: FDA-Public Use
  Company Number: US-ROCHE-1015959

PATIENT
  Age: 50 Year
  Sex: Female

DRUGS (9)
  1. BONIVA [Suspect]
     Active Substance: IBANDRONATE SODIUM
     Indication: OSTEOPOROSIS
     Route: 065
     Dates: start: 2005, end: 2010
  2. VITAMIN B12 [Concomitant]
     Active Substance: CYANOCOBALAMIN
     Route: 065
  3. ZEGERID [Concomitant]
     Active Substance: OMEPRAZOLE\SODIUM BICARBONATE
     Route: 065
     Dates: start: 2007
  4. COENZYME Q10 [Concomitant]
     Active Substance: UBIDECARENONE
     Route: 065
  5. PRILOSEC [Concomitant]
     Active Substance: OMEPRAZOLE MAGNESIUM
     Route: 065
     Dates: start: 2007
  6. NEXIUM [Concomitant]
     Active Substance: ESOMEPRAZOLE MAGNESIUM
     Route: 065
     Dates: start: 2003, end: 2007
  7. PROTONIX [Concomitant]
     Active Substance: PANTOPRAZOLE SODIUM
     Route: 065
     Dates: start: 2002
  8. FOSAMAX [Suspect]
     Active Substance: ALENDRONATE SODIUM
     Indication: OSTEOPOROSIS
     Route: 065
     Dates: start: 1995, end: 2005
  9. ACTONEL [Suspect]
     Active Substance: RISEDRONATE SODIUM
     Indication: OSTEOPOROSIS
     Route: 065

REACTIONS (5)
  - Emotional distress [Unknown]
  - Depression [Not Recovered/Not Resolved]
  - Low turnover osteopathy [Unknown]
  - Anxiety [Unknown]
  - Femur fracture [Unknown]

NARRATIVE: CASE EVENT DATE: 20100817
